FAERS Safety Report 22394361 (Version 1)
Quarter: 2023Q2

REPORT INFORMATION
  Report Type: Spontaneous
  Country: US (occurrence: US)
  Receive Date: 20230601
  Receipt Date: 20230601
  Transmission Date: 20230721
  Serious: No
  Sender: FDA-Public Use
  Company Number: US-APIL-2309619US

PATIENT
  Sex: Male
  Weight: 81.65 kg

DRUGS (1)
  1. MESALAMINE [Suspect]
     Active Substance: MESALAMINE
     Indication: Product used for unknown indication

REACTIONS (4)
  - Product storage error [Unknown]
  - Product shape issue [Unknown]
  - Product physical consistency issue [Unknown]
  - Drug ineffective [Unknown]
